FAERS Safety Report 17048085 (Version 1)
Quarter: 2019Q4

REPORT INFORMATION
  Report Type: Spontaneous
  Country: SI (occurrence: SI)
  Receive Date: 20191119
  Receipt Date: 20191119
  Transmission Date: 20200122
  Serious: Yes (Other)
  Sender: FDA-Public Use
  Company Number: SI-JNJFOC-20191105980

PATIENT
  Sex: Female

DRUGS (2)
  1. DUROGESIC [Suspect]
     Active Substance: FENTANYL
     Indication: PAIN
     Route: 062
     Dates: start: 2007, end: 20121223
  2. DUROGESIC [Suspect]
     Active Substance: FENTANYL
     Route: 062

REACTIONS (15)
  - Coma [Unknown]
  - Depression [Unknown]
  - Renal disorder [Unknown]
  - Memory impairment [Unknown]
  - Lymphadenopathy [Unknown]
  - Confusional state [Unknown]
  - Hypertension [Unknown]
  - Emotional disorder [Unknown]
  - Muscle spasms [Unknown]
  - Intentional overdose [Unknown]
  - Drug dependence [Unknown]
  - Decreased appetite [Unknown]
  - Suicide attempt [Unknown]
  - Insomnia [Unknown]
  - Constipation [Unknown]
